FAERS Safety Report 19919173 (Version 2)
Quarter: 2021Q4

REPORT INFORMATION
  Report Type: Spontaneous
  Country: US (occurrence: US)
  Receive Date: 20211004
  Receipt Date: 20211118
  Transmission Date: 20220303
  Serious: Yes (Other)
  Sender: FDA-Public Use
  Company Number: US-009507513-2109USA007459

PATIENT
  Age: 49 Year
  Sex: Male

DRUGS (2)
  1. KEYTRUDA [Suspect]
     Active Substance: PEMBROLIZUMAB
     Indication: Malignant melanoma
  2. DEXAMETHASONE [Concomitant]
     Active Substance: DEXAMETHASONE

REACTIONS (1)
  - Immune-mediated hepatitis [Unknown]
